FAERS Safety Report 19176787 (Version 1)
Quarter: 2021Q2

REPORT INFORMATION
  Report Type: Spontaneous
  Country: US (occurrence: US)
  Receive Date: 20210424
  Receipt Date: 20210424
  Transmission Date: 20210717
  Serious: No
  Sender: FDA-Public Use
  Company Number: US-B.I. PHARMACEUTICALS,INC./RIDGEFIELD-2021-BI-097962

PATIENT
  Sex: Female

DRUGS (12)
  1. GLUCOSAMINE CHONDROITIN [CHONDROITIN SULFATE SODIUM;GLUCOSAMINE] [Concomitant]
     Indication: DRUG THERAPY
     Dosage: 2 TABLETS  ONCE DAILY
  2. BUSPIRONE [Concomitant]
     Active Substance: BUSPIRONE HYDROCHLORIDE
     Indication: ANXIETY
     Dosage: 15 MG FOUR TIMES DAILY
  3. HYDRALAZINE [Concomitant]
     Active Substance: HYDRALAZINE HYDROCHLORIDE
     Indication: HYPERTENSION
     Dosage: 25MG, THREE TIMES DAILY
  4. DULOXETINE DR [Concomitant]
     Active Substance: DULOXETINE
     Indication: DEPRESSION
     Dosage: 60MG, TWICE DAILY
  5. ATORVASTATIN [Concomitant]
     Active Substance: ATORVASTATIN
     Indication: BLOOD CHOLESTEROL INCREASED
     Dosage: 80 MG ONCE DAILY
  6. VICTOZA [Concomitant]
     Active Substance: LIRAGLUTIDE
     Indication: TYPE 2 DIABETES MELLITUS
     Dosage: 1.8MG ONCE DAILY
  7. ATROVENT [Suspect]
     Active Substance: IPRATROPIUM BROMIDE
     Indication: ASTHMA
     Dosage: 1 TO 2 INHALATIONS 4 TIMES A DAY
  8. EMGALITY [Concomitant]
     Active Substance: GALCANEZUMAB-GNLM
     Indication: MIGRAINE
     Dosage: ONCE A MONTH
  9. METFORMIN ER [Concomitant]
     Active Substance: METFORMIN HYDROCHLORIDE
     Indication: TYPE 2 DIABETES MELLITUS
     Dosage: 500MG, 2 TABLETS ONCE DAILY
  10. TIZANIDINE. [Concomitant]
     Active Substance: TIZANIDINE
     Indication: MUSCLE SPASMS
     Dosage: 2MG, THREE TIMES DAILY
  11. METHOTREXATE. [Concomitant]
     Active Substance: METHOTREXATE
     Indication: RHEUMATOID ARTHRITIS
     Dosage: 2.5MG TABLETS, ONCE WEEKLY
  12. HUMULIN R [Concomitant]
     Active Substance: INSULIN HUMAN
     Indication: TYPE 2 DIABETES MELLITUS
     Dosage: AS NEEDED FOR BLOOD SUGARS }150

REACTIONS (3)
  - Rheumatoid arthritis [Recovering/Resolving]
  - Off label use [Unknown]
  - Osteoarthritis [Recovering/Resolving]
